FAERS Safety Report 18816340 (Version 1)
Quarter: 2021Q1

REPORT INFORMATION
  Report Type: Spontaneous
  Country: US (occurrence: US)
  Receive Date: 20210201
  Receipt Date: 20210201
  Transmission Date: 20210419
  Serious: Yes (Hospitalization)
  Sender: FDA-Public Use
  Company Number: None

PATIENT
  Age: 42 Year
  Sex: Male

DRUGS (10)
  1. CARVEDILOL. [Concomitant]
     Active Substance: CARVEDILOL
     Dates: start: 20200803
  2. CLONAZEPAM. [Concomitant]
     Active Substance: CLONAZEPAM
     Dates: start: 20200803
  3. TRIAMCINOLONE [Concomitant]
     Active Substance: TRIAMCINOLONE
     Dates: start: 20200902
  4. ATORVASTATIN [Concomitant]
     Active Substance: ATORVASTATIN
     Dates: start: 20200618
  5. CIMZIA [Suspect]
     Active Substance: CERTOLIZUMAB PEGOL
     Indication: PSORIATIC ARTHROPATHY
     Dosage: ?          OTHER FREQUENCY:Q2WKS;?
     Route: 058
     Dates: start: 20200922
  6. GABAPENTIN. [Concomitant]
     Active Substance: GABAPENTIN
     Dates: start: 20200618
  7. PREDNISONE. [Concomitant]
     Active Substance: PREDNISONE
     Dates: start: 20200707
  8. CLOPIDOGREL [Concomitant]
     Active Substance: CLOPIDOGREL BISULFATE
     Dates: start: 20200924
  9. CLOBETASOL [Concomitant]
     Active Substance: CLOBETASOL
     Dates: start: 20200922
  10. FEROSULFATE [Concomitant]
     Dates: start: 20201224

REACTIONS (2)
  - Arthritis [None]
  - Diarrhoea [None]

NARRATIVE: CASE EVENT DATE: 20201128
